FAERS Safety Report 12531081 (Version 1)
Quarter: 2016Q3

REPORT INFORMATION
  Report Type: Report from Study
  Country: CA (occurrence: CA)
  Receive Date: 20160706
  Receipt Date: 20160706
  Transmission Date: 20161109
  Serious: Yes (Hospitalization, Other)
  Sender: FDA-Public Use
  Company Number: PHHY2016CA030172

PATIENT
  Age: 68 Year
  Sex: Female

DRUGS (1)
  1. ZOMETA [Suspect]
     Active Substance: ZOLEDRONIC ACID
     Indication: BREAST CANCER
     Dosage: 4 MG, QMO, EVERY 4 WEEKS
     Route: 042

REACTIONS (3)
  - Tooth disorder [Recovered/Resolved]
  - Feeling abnormal [Unknown]
  - Infection [Unknown]

NARRATIVE: CASE EVENT DATE: 201512
